FAERS Safety Report 9956083 (Version 1)
Quarter: 2014Q1

REPORT INFORMATION
  Report Type: Spontaneous
  Country: US (occurrence: US)
  Receive Date: 20140304
  Receipt Date: 20140304
  Transmission Date: 20141002
  Serious: No
  Sender: FDA-Public Use
  Company Number: US-ABBVIE-13P-163-1089981-00

PATIENT
  Sex: 0

DRUGS (5)
  1. HUMIRA [Suspect]
     Indication: PSORIATIC ARTHROPATHY
  2. REMICADE [Suspect]
     Indication: PSORIATIC ARTHROPATHY
  3. STEROID CREAM [Concomitant]
     Indication: PSORIASIS
  4. DAYPRO [Concomitant]
     Indication: PRODUCT USED FOR UNKNOWN INDICATION
  5. INSULIN [Concomitant]
     Indication: DIABETES MELLITUS
     Dosage: 5 - 6 TIMES PER DAY

REACTIONS (10)
  - Skin fissures [Unknown]
  - Skin haemorrhage [Unknown]
  - Pain in extremity [Unknown]
  - Skin plaque [Unknown]
  - Musculoskeletal stiffness [Unknown]
  - Pain in extremity [Unknown]
  - Joint contracture [Unknown]
  - Drug hypersensitivity [Unknown]
  - Drug ineffective [Unknown]
  - Psoriatic arthropathy [Unknown]
